FAERS Safety Report 12925339 (Version 2)
Quarter: 2018Q4

REPORT INFORMATION
  Report Type: Spontaneous
  Country: US (occurrence: US)
  Receive Date: 20161108
  Receipt Date: 20181009
  Transmission Date: 20190204
  Serious: No
  Sender: FDA-Public Use
  Company Number: US-SA-2016SA149752

PATIENT
  Age: 76 Year
  Sex: Male

DRUGS (2)
  1. PRALUENT [Suspect]
     Active Substance: ALIROCUMAB
     Indication: BLOOD CHOLESTEROL INCREASED
     Dosage: 75 MG,QOW
     Route: 065
     Dates: start: 20160728
  2. BABY ASPIRIN [Concomitant]
     Active Substance: ASPIRIN

REACTIONS (7)
  - Dyspnoea [Unknown]
  - Tinnitus [Unknown]
  - Flushing [Unknown]
  - Erythema [Unknown]
  - Wheezing [Unknown]
  - Rash [Unknown]
  - Dysphonia [Unknown]

NARRATIVE: CASE EVENT DATE: 20160728
